FAERS Safety Report 6529264-5 (Version None)
Quarter: 2010Q1

REPORT INFORMATION
  Report Type: 
  Country: None (occurrence: None)
  Receive Date: 20100104
  Receipt Date: 20091208
  Transmission Date: 20100710
  Serious: Yes (Hospitalization, Other)
  Sender: FDA-Public Use
  Company Number: THYM-1001279

PATIENT
  Age: 72 Year
  Sex: Male
  Weight: 98.6 kg

DRUGS (10)
  1. THYMOGLOBULIN [Suspect]
     Indication: APLASTIC ANAEMIA
     Dosage: INTRAVENOUS
     Route: 042
     Dates: start: 20091006, end: 20091012
  2. CYCLOSPORINE [Concomitant]
  3. CIPROFLOXACIN [Concomitant]
  4. ACYCLOVIR [Concomitant]
  5. FLUCONAZOLE [Concomitant]
  6. BENDROFLUMETHIAZIDE (BENDROFLUMETHIAZIDE) [Concomitant]
  7. VERAPAMIL [Concomitant]
  8. PREDNISOLONE [Concomitant]
  9. OMEPRAZOLE [Concomitant]
  10. POTASSIUM CHLORIDE [Concomitant]

REACTIONS (6)
  - CHILLS [None]
  - DEVICE RELATED INFECTION [None]
  - FATIGUE [None]
  - FEBRILE NEUTROPENIA [None]
  - MALAISE [None]
  - STAPHYLOCOCCAL BACTERAEMIA [None]
